FAERS Safety Report 8327706-6 (Version None)
Quarter: 2012Q2

REPORT INFORMATION
  Report Type: 
  Country: None (occurrence: None)
  Receive Date: 20120502
  Receipt Date: 20120430
  Transmission Date: 20120825
  Serious: No
  Sender: FDA-Public Use
  Company Number: US-PFIZER INC-2012106475

PATIENT
  Sex: Female
  Weight: 57.143 kg

DRUGS (2)
  1. SIMVASTATIN [Concomitant]
     Indication: BLOOD CHOLESTEROL ABNORMAL
     Dosage: 10 MG, DAILY
  2. GABAPENTIN [Suspect]
     Indication: PROCEDURAL PAIN
     Dosage: 300 MG, 3X/DAY
     Dates: start: 20050101

REACTIONS (5)
  - BURNING SENSATION [None]
  - DRUG INEFFECTIVE [None]
  - HEARING IMPAIRED [None]
  - INSOMNIA [None]
  - DISCOMFORT [None]
